FAERS Safety Report 15951394 (Version 2)
Quarter: 2019Q1

REPORT INFORMATION
  Report Type: Report from Study
  Country: IT (occurrence: IT)
  Receive Date: 20190212
  Receipt Date: 20190318
  Transmission Date: 20190417
  Serious: Yes (Other)
  Sender: FDA-Public Use
  Company Number: IT-MYLANLABS-2019M1012306

PATIENT
  Age: 68 Year
  Sex: Female

DRUGS (2)
  1. CARBOPLATINO [Concomitant]
     Active Substance: CARBOPLATIN
     Dosage: 300 MILLIGRAM
     Route: 042
     Dates: start: 20180703
  2. PACLITAXEL MYLAN 6 MG/ML CONCENTRADO PARA SOLU??O PARA PERFUS?O [Suspect]
     Active Substance: PACLITAXEL
     Indication: ENDOMETRIAL ADENOCARCINOMA
     Dosage: 300 MILLIGRAM, CYCLE
     Route: 042
     Dates: start: 20180703

REACTIONS (2)
  - Back pain [Recovered/Resolved]
  - Feeling hot [Recovered/Resolved]

NARRATIVE: CASE EVENT DATE: 20180724
